FAERS Safety Report 4511715-9 (Version None)
Quarter: 2004Q4

REPORT INFORMATION
  Report Type: 
  Country: None (occurrence: None)
  Receive Date: 20041129
  Receipt Date: 20041115
  Transmission Date: 20050328
  Serious: Yes (Hospitalization)
  Sender: FDA-Public Use
  Company Number: FRWYE202415NOV04

PATIENT
  Sex: Male

DRUGS (6)
  1. ENBREL [Suspect]
     Indication: PSORIATIC ARTHROPATHY
     Dosage: UNKNOWN
     Route: 058
  2. ENBREL [Suspect]
     Indication: ANKYLOSING SPONDYLITIS
  3. METHOTREXATE [Suspect]
     Indication: PSORIATIC ARTHROPATHY
     Dosage: UNKNOWN
     Route: 048
  4. METHOTREXATE [Suspect]
     Indication: ANKYLOSING SPONDYLITIS
  5. CORTICOSTEROID NOS [Suspect]
     Indication: PSORIATIC ARTHROPATHY
     Dosage: UNKNOWN
  6. CORTICOSTEROID NOS [Suspect]
     Indication: ANKYLOSING SPONDYLITIS

REACTIONS (5)
  - ARRHYTHMIA [None]
  - CARDIAC INFECTION [None]
  - CONDITION AGGRAVATED [None]
  - ECHINOCOCCIASIS [None]
  - MYOCARDIAL ISCHAEMIA [None]
